FAERS Safety Report 4813832-2 (Version None)
Quarter: 2005Q4

REPORT INFORMATION
  Report Type: 
  Country: None (occurrence: None)
  Receive Date: 20051028
  Receipt Date: 20050328
  Transmission Date: 20060501
  Serious: No
  Sender: FDA-Public Use
  Company Number: US-GLAXOSMITHKLINE-A0551349A

PATIENT
  Age: 70 Year
  Sex: Male

DRUGS (9)
  1. ADVAIR DISKUS 100/50 [Suspect]
     Indication: CHRONIC OBSTRUCTIVE PULMONARY DISEASE
     Dosage: 1PUFF TWICE PER DAY
     Route: 055
  2. FOSAMAX [Concomitant]
  3. CARDURA [Concomitant]
  4. LIPITOR [Concomitant]
  5. ASPIRIN [Concomitant]
  6. ALLERGY MEDICATION [Concomitant]
  7. MACRODANTIN [Concomitant]
  8. RESTASIS [Concomitant]
  9. CALCIUM GLUCONATE [Concomitant]

REACTIONS (4)
  - BONE DISORDER [None]
  - DRY EYE [None]
  - EYE DISORDER [None]
  - WEIGHT INCREASED [None]
